FAERS Safety Report 18278107 (Version 17)
Quarter: 2021Q3

REPORT INFORMATION
  Report Type: Report from Study
  Country: BR (occurrence: BR)
  Receive Date: 20200917
  Receipt Date: 20210927
  Transmission Date: 20211014
  Serious: Yes (Death, Hospitalization)
  Sender: FDA-Public Use
  Company Number: BR-ROCHE-2675807

PATIENT
  Age: 57 Year
  Sex: Female
  Weight: 64 kg

DRUGS (36)
  1. ATEZOLIZUMAB. [Suspect]
     Active Substance: ATEZOLIZUMAB
     Indication: NEOPLASM
     Dosage: FIRST DOSE 1200 MG, LAST DOSE PRIOR TO AE AND SAE 1200 MG.?TOTAL VOLUME PRIOR TO AE AND SAE 270 ML.
     Route: 041
     Dates: start: 20200831
  2. INSULIN REGULAR [Concomitant]
     Active Substance: INSULIN NOS
     Indication: TYPE 2 DIABETES MELLITUS
     Dates: start: 20200204
  3. ENOXAPARIN [Concomitant]
     Active Substance: ENOXAPARIN
     Indication: VENA CAVA THROMBOSIS
     Dates: start: 2019
  4. LACTULOSE. [Concomitant]
     Active Substance: LACTULOSE
     Indication: CONSTIPATION PROPHYLAXIS
     Dates: start: 2017
  5. ONDANSETRON [Concomitant]
     Active Substance: ONDANSETRON
     Indication: NAUSEA
     Dates: start: 2017, end: 20200909
  6. IPRATROPIUM [Concomitant]
     Active Substance: IPRATROPIUM
     Indication: DYSPNOEA
     Dates: start: 202002, end: 20200909
  7. CHLORHEXIDINE [Concomitant]
     Active Substance: CHLORHEXIDINE
     Indication: COVID-19
     Dates: start: 20201014, end: 20201014
  8. MIDAZOLAM. [Concomitant]
     Active Substance: MIDAZOLAM
     Indication: COVID-19
     Dates: start: 20201014, end: 20201014
  9. MIDAZOLAM. [Concomitant]
     Active Substance: MIDAZOLAM
     Dates: start: 20201016, end: 20201016
  10. GLUCOSE [Concomitant]
     Active Substance: DEXTROSE
     Dates: start: 20201016, end: 20201016
  11. INSULIN REGULAR [Concomitant]
     Active Substance: INSULIN NOS
     Dates: start: 20201013, end: 20201016
  12. VASOPRESSIN. [Concomitant]
     Active Substance: VASOPRESSIN
     Indication: COVID-19
     Dates: start: 20201016, end: 20201017
  13. MAGNESIUM SULFATE. [Concomitant]
     Active Substance: MAGNESIUM SULFATE
     Dates: start: 20201016, end: 20201016
  14. GLICAZIDA [Concomitant]
     Active Substance: GLICLAZIDE
     Indication: TYPE 2 DIABETES MELLITUS
     Dates: start: 2007, end: 20200909
  15. NPH INSULIN [Concomitant]
     Active Substance: INSULIN BEEF
     Indication: TYPE 2 DIABETES MELLITUS
     Dates: start: 20200204
  16. DIPYRONE [Concomitant]
     Active Substance: DIPYRONE
     Indication: CHEST PAIN
     Dates: start: 2017, end: 20200828
  17. FENTANYL. [Concomitant]
     Active Substance: FENTANYL
     Indication: CHEST PAIN
     Dates: start: 2017, end: 20201011
  18. GLUCOSE [Concomitant]
     Active Substance: DEXTROSE
     Dosage: SOLUTION 10%
     Dates: start: 20201012, end: 20201013
  19. GLUCOSE [Concomitant]
     Active Substance: DEXTROSE
     Dosage: SOLUTION 10%
     Dates: start: 20201016, end: 20201016
  20. LOPERAMIDE [Concomitant]
     Active Substance: LOPERAMIDE
     Indication: DIARRHOEA
     Dates: start: 20200903, end: 20200903
  21. DIPYRONE [Concomitant]
     Active Substance: DIPYRONE
     Indication: PAIN IN EXTREMITY
  22. GABAPENTINA [Concomitant]
     Active Substance: GABAPENTIN
     Indication: CHEST PAIN
     Dates: start: 2017, end: 20200930
  23. SULFAMETOXAZOL + TRIMETOPRIMA [Concomitant]
     Active Substance: SULFAMETHOXAZOLE\TRIMETHOPRIM
     Indication: COVID-19
     Dosage: 4 AMPULE
     Dates: start: 20201010, end: 20201011
  24. SULFAMETOXAZOL + TRIMETOPRIMA [Concomitant]
     Active Substance: SULFAMETHOXAZOLE\TRIMETHOPRIM
     Dosage: 4 AMPULE
     Dates: start: 20201012, end: 20201012
  25. SULFAMETOXAZOL + TRIMETOPRIMA [Concomitant]
     Active Substance: SULFAMETHOXAZOLE\TRIMETHOPRIM
     Dosage: 4 AMPULE
     Dates: start: 20201014, end: 20201015
  26. SULFAMETOXAZOL + TRIMETOPRIMA [Concomitant]
     Active Substance: SULFAMETHOXAZOLE\TRIMETHOPRIM
     Dosage: 4 AMPULE
     Dates: start: 20201011
  27. MAGNESIUM SULFATE. [Concomitant]
     Active Substance: MAGNESIUM SULFATE
     Indication: COVID-19
     Dates: start: 20201014, end: 20201014
  28. SODIUM BICARBONATE. [Concomitant]
     Active Substance: SODIUM BICARBONATE
     Indication: COVID-19
     Dates: start: 20201016, end: 20201016
  29. MORPHINE [Concomitant]
     Active Substance: MORPHINE
     Indication: CHEST PAIN
     Dates: start: 2017
  30. MAGNESIUM [Concomitant]
     Active Substance: MAGNESIUM
     Indication: HYPOMAGNESAEMIA
     Dates: start: 20200831, end: 20200903
  31. SULFAMETOXAZOL + TRIMETOPRIMA [Concomitant]
     Active Substance: SULFAMETHOXAZOLE\TRIMETHOPRIM
     Dosage: 4 AMPULE
     Dates: start: 20201017, end: 20201017
  32. DEXMEDETOMIDINE. [Concomitant]
     Active Substance: DEXMEDETOMIDINE
     Indication: COVID-19
     Dates: start: 20201013, end: 20201017
  33. GLUCOSE [Concomitant]
     Active Substance: DEXTROSE
     Indication: COVID-19
     Dates: start: 20201012, end: 20201013
  34. RO7122290 (FAP?4?1BBL MAB) [Suspect]
     Active Substance: INVESTIGATIONAL PRODUCT
     Indication: NEOPLASM
     Dosage: FIRST DOSE ADMINISTERED 250 MG, LAST DOSE PRIOR TO AE AND SAE 250 MG.?ON 31/AUG/2020, THE PATIENT RE
     Route: 041
     Dates: start: 20200831
  35. LORAZEPAM. [Concomitant]
     Active Substance: LORAZEPAM
     Indication: INSOMNIA
     Dates: start: 2017, end: 20200915
  36. CELECOXIB. [Concomitant]
     Active Substance: CELECOXIB
     Indication: PAIN IN EXTREMITY
     Dates: start: 20200830, end: 20200903

REACTIONS (3)
  - Immune-mediated hepatitis [Recovering/Resolving]
  - Neutropenia [Recovering/Resolving]
  - Systemic inflammatory response syndrome [Recovering/Resolving]

NARRATIVE: CASE EVENT DATE: 20200908
